FAERS Safety Report 7759152-8 (Version None)
Quarter: 2011Q3

REPORT INFORMATION
  Report Type: 
  Country: None (occurrence: None)
  Receive Date: 20110919
  Receipt Date: 20110915
  Transmission Date: 20111222
  Serious: Yes (Death, Hospitalization)
  Sender: FDA-Public Use
  Company Number: PHEH2011US04268

PATIENT
  Sex: Female
  Weight: 18.4 kg

DRUGS (1)
  1. EXJADE [Suspect]
     Indication: HAEMOGLOBINOPATHY
     Dosage: 500 MG, DAILY
     Route: 048
     Dates: start: 20090701

REACTIONS (1)
  - DEATH [None]
